FAERS Safety Report 8487990-5 (Version None)
Quarter: 2012Q3

REPORT INFORMATION
  Report Type: 
  Country: None (occurrence: None)
  Receive Date: 20120705
  Receipt Date: 20120628
  Transmission Date: 20120928
  Serious: Yes (Hospitalization, Other)
  Sender: FDA-Public Use
  Company Number: PHHY2011CA105775

PATIENT
  Sex: Female

DRUGS (3)
  1. CLOZARIL [Suspect]
     Indication: SCHIZOPHRENIA, PARANOID TYPE
     Dosage: 400 MG, BID
     Route: 048
     Dates: start: 20090223
  2. SINEQUAN [Concomitant]
     Dosage: DECREASED WITH 25MG/DAY
  3. SINEQUAN [Concomitant]
     Dosage: 225 MG AT NIGHT

REACTIONS (4)
  - PNEUMONIA [None]
  - CHRONIC OBSTRUCTIVE PULMONARY DISEASE [None]
  - WHITE BLOOD CELL COUNT DECREASED [None]
  - INTESTINAL OBSTRUCTION [None]
